FAERS Safety Report 4739570-2 (Version None)
Quarter: 2005Q3

REPORT INFORMATION
  Report Type: 
  Country: None (occurrence: None)
  Receive Date: 20050810
  Receipt Date: 20050405
  Transmission Date: 20060218
  Serious: No
  Sender: FDA-Public Use
  Company Number: US-GLAXOSMITHKLINE-A0552782A

PATIENT
  Age: 44 Year
  Sex: Male

DRUGS (3)
  1. PAXIL [Suspect]
     Indication: DRUG USE FOR UNKNOWN INDICATION
     Dosage: 40MG PER DAY
     Route: 048
  2. LORAZEPAM [Concomitant]
  3. UNKNOWN ANTIHYPERTENSIVE AGENT [Concomitant]

REACTIONS (2)
  - HYPERHIDROSIS [None]
  - HYPOAESTHESIA [None]
